FAERS Safety Report 12807884 (Version 1)
Quarter: 2016Q4

REPORT INFORMATION
  Report Type: Spontaneous
  Country: US (occurrence: US)
  Receive Date: 20161004
  Receipt Date: 20161004
  Transmission Date: 20170207
  Serious: No
  Sender: FDA-Public Use
  Company Number: US-AMGEN-USASP2015136020

PATIENT
  Age: 76 Year
  Sex: Male

DRUGS (18)
  1. SUDAFED [Concomitant]
     Active Substance: PSEUDOEPHEDRINE HYDROCHLORIDE
     Route: 065
  2. NORVASC [Concomitant]
     Active Substance: AMLODIPINE BESYLATE
  3. FLOMAX [Concomitant]
     Active Substance: TAMSULOSIN HYDROCHLORIDE
  4. OMEPRAZOLE. [Concomitant]
     Active Substance: OMEPRAZOLE
     Route: 065
  5. PRILOSEC [Concomitant]
     Active Substance: OMEPRAZOLE MAGNESIUM
     Route: 065
  6. LUPRON [Suspect]
     Active Substance: LEUPROLIDE ACETATE
     Indication: PRODUCT USED FOR UNKNOWN INDICATION
     Dosage: UNK
     Route: 065
     Dates: start: 20151026
  7. CLONIDINE. [Concomitant]
     Active Substance: CLONIDINE
  8. POTASSIUM [Concomitant]
     Active Substance: POTASSIUM
  9. XGEVA [Suspect]
     Active Substance: DENOSUMAB
     Indication: PRODUCT USED FOR UNKNOWN INDICATION
     Dosage: UNK
     Route: 065
     Dates: start: 20151026
  10. SENNA [Concomitant]
     Active Substance: SENNA LEAF\SENNOSIDES\SENNOSIDES A AND B
  11. PHENYLEPHRINE [Concomitant]
     Active Substance: PHENYLEPHRINE\PHENYLEPHRINE HYDROCHLORIDE
     Route: 065
  12. ASPIRIN. [Concomitant]
     Active Substance: ASPIRIN
  13. AVAPRO [Concomitant]
     Active Substance: IRBESARTAN
  14. XTANDI [Suspect]
     Active Substance: ENZALUTAMIDE
     Indication: PROSTATE CANCER
     Dosage: 160 MG, (40 MG CAPSULE) QD
     Route: 048
     Dates: start: 20130821
  15. POTASSIUM CITRATE. [Concomitant]
     Active Substance: POTASSIUM CITRATE
  16. OXYCODONE [Concomitant]
     Active Substance: OXYCODONE
  17. CALCIUM [Concomitant]
     Active Substance: CALCIUM
  18. KETOCONAZOLE. [Concomitant]
     Active Substance: KETOCONAZOLE
     Dosage: 2% CREAM

REACTIONS (11)
  - Arthritis [Unknown]
  - Nasopharyngitis [Unknown]
  - Cough [Unknown]
  - Sneezing [Unknown]
  - Asthenia [Unknown]
  - Hot flush [Unknown]
  - Gait disturbance [Unknown]
  - Pain in extremity [Unknown]
  - Rhinorrhoea [Unknown]
  - Prostatic specific antigen increased [Unknown]
  - Headache [Unknown]
